FAERS Safety Report 20496432 (Version 1)
Quarter: 2022Q1

REPORT INFORMATION
  Report Type: Spontaneous
  Country: MX (occurrence: MX)
  Receive Date: 20220221
  Receipt Date: 20220221
  Transmission Date: 20220423
  Serious: No
  Sender: FDA-Public Use
  Company Number: MX-UCBSA-2022008781

PATIENT
  Sex: Female

DRUGS (3)
  1. NEUPRO [Suspect]
     Active Substance: ROTIGOTINE
     Indication: Product used for unknown indication
     Dosage: 4MG
  2. NEUPRO [Suspect]
     Active Substance: ROTIGOTINE
     Dosage: 6MG
  3. NEUPRO [Suspect]
     Active Substance: ROTIGOTINE
     Dosage: 8MG

REACTIONS (1)
  - Product adhesion issue [Unknown]
